FAERS Safety Report 22640813 (Version 1)
Quarter: 2023Q2

REPORT INFORMATION
  Report Type: Spontaneous
  Country: US (occurrence: US)
  Receive Date: 20230626
  Receipt Date: 20230626
  Transmission Date: 20230721
  Serious: Yes (Other)
  Sender: FDA-Public Use
  Company Number: US-drreddys-LIT/USA/23/0168644

PATIENT
  Age: 48 Year
  Sex: Female

DRUGS (4)
  1. SUCCINYLCHOLINE CHLORIDE [Interacting]
     Active Substance: SUCCINYLCHOLINE CHLORIDE
     Indication: Bipolar disorder
  2. SUCCINYLCHOLINE CHLORIDE [Interacting]
     Active Substance: SUCCINYLCHOLINE CHLORIDE
     Dosage: DOSE WAS THEREFORE REDUCED TO HALF OF PREVIOUS DOSE
  3. METHOHEXITAL [Interacting]
     Active Substance: METHOHEXITAL
     Indication: Bipolar disorder
     Route: 042
  4. KETAMINE [Interacting]
     Active Substance: KETAMINE
     Indication: Bipolar disorder

REACTIONS (3)
  - Hypoxia [Unknown]
  - Drug interaction [Unknown]
  - Product use in unapproved indication [Unknown]
